FAERS Safety Report 6309451-1 (Version None)
Quarter: 2009Q3

REPORT INFORMATION
  Report Type: 
  Country: None (occurrence: None)
  Receive Date: 20090814
  Receipt Date: 20090810
  Transmission Date: 20100115
  Serious: Yes (Other)
  Sender: FDA-Public Use
  Company Number: DE-JNJFOC-20090802737

PATIENT
  Age: 78 Year
  Sex: Male

DRUGS (3)
  1. TAVANIC [Suspect]
     Indication: PROSTATE CANCER
     Route: 048
  2. NITRENDIPINE [Concomitant]
     Route: 048
  3. METOPROLOL [Concomitant]
     Indication: HYPERTENSION
     Route: 065

REACTIONS (3)
  - MUSCLE SWELLING [None]
  - OEDEMA PERIPHERAL [None]
  - THROMBOSIS [None]
